FAERS Safety Report 20524634 (Version 4)
Quarter: 2022Q2

REPORT INFORMATION
  Report Type: Report from Study
  Country: CN (occurrence: CN)
  Receive Date: 20220228
  Receipt Date: 20220531
  Transmission Date: 20220720
  Serious: Yes (Life-Threatening)
  Sender: FDA-Public Use
  Company Number: CN-BoehringerIngelheim-2022-BI-154923

PATIENT
  Age: 55 Year
  Sex: Male
  Weight: 55 kg

DRUGS (21)
  1. TENECTEPLASE [Suspect]
     Active Substance: TENECTEPLASE
     Indication: Ischaemic stroke
     Route: 042
     Dates: start: 20220219, end: 20220219
  2. TROXERUTIN [Concomitant]
     Active Substance: TROXERUTIN
     Indication: Ischaemic stroke
     Route: 042
     Dates: start: 20220219, end: 20220220
  3. EDARAVONE [Concomitant]
     Active Substance: EDARAVONE
     Indication: Ischaemic stroke
     Route: 042
     Dates: start: 20220219, end: 20220220
  4. NIMODIPINE [Concomitant]
     Active Substance: NIMODIPINE
     Indication: Pneumonia
     Route: 042
     Dates: start: 20220220, end: 20220220
  5. PROTAMINE [Concomitant]
     Active Substance: PROTAMINE
     Indication: Haemostasis
     Route: 042
     Dates: start: 20220220, end: 20220220
  6. ACEGLUTAMIDE [Concomitant]
     Active Substance: ACEGLUTAMIDE
     Indication: Ischaemic stroke
     Route: 045
     Dates: start: 20220220, end: 20220220
  7. ACETYLCYSTEINE [Concomitant]
     Active Substance: ACETYLCYSTEINE
     Indication: Anti-infective therapy
     Dosage: AEROSOL INHALATION
     Route: 055
     Dates: start: 20220220, end: 20220309
  8. OMEPRAZOLE SODIUM [Concomitant]
     Active Substance: OMEPRAZOLE SODIUM
     Indication: Prophylaxis
     Route: 042
     Dates: start: 20220220, end: 20220223
  9. TRANEXAMIC ACID [Concomitant]
     Active Substance: TRANEXAMIC ACID
     Indication: Dehydration
     Route: 042
     Dates: start: 20220220, end: 20220220
  10. DIAZEPAM [Concomitant]
     Active Substance: DIAZEPAM
     Indication: Pneumonia
     Route: 041
     Dates: start: 20220220, end: 20220220
  11. CEFUROXIME [Concomitant]
     Active Substance: CEFUROXIME
     Indication: Haemostasis
     Route: 042
     Dates: start: 20220220, end: 20220222
  12. DEXMEDETOMIDINE [Concomitant]
     Active Substance: DEXMEDETOMIDINE
     Indication: Drug therapy
     Route: 042
     Dates: start: 20220220, end: 20220220
  13. DEZOCINE [Concomitant]
     Active Substance: DEZOCINE
     Indication: Pain
     Route: 042
     Dates: start: 20220220, end: 20220223
  14. AMINOCAPROIC ACID [Concomitant]
     Active Substance: AMINOCAPROIC ACID
     Indication: Electrolyte substitution therapy
     Route: 042
     Dates: start: 20220220, end: 20220223
  15. CARBOHYDRATES\ELECTROLYTES NOS [Concomitant]
     Active Substance: CARBOHYDRATES\ELECTROLYTES NOS
     Indication: Drug therapy
     Route: 042
     Dates: start: 20220220, end: 20220220
  16. VITAMIN C [Concomitant]
     Active Substance: ASCORBIC ACID
     Indication: Electrolyte substitution therapy
     Route: 042
     Dates: start: 20220220, end: 20220220
  17. VITAMIN B6 [Concomitant]
     Active Substance: PYRIDOXINE HYDROCHLORIDE
     Indication: Electrolyte substitution therapy
     Route: 042
     Dates: start: 20220220, end: 20220220
  18. POTASSIUM CHLORIDE [Concomitant]
     Active Substance: POTASSIUM CHLORIDE
     Indication: Mineral supplementation
     Route: 042
     Dates: start: 20220220, end: 20220313
  19. BUDESONIDE [Concomitant]
     Active Substance: BUDESONIDE
     Indication: Anti-infective therapy
     Route: 055
     Dates: start: 20220220, end: 20220309
  20. GANGLIOSIDE GM1 [Concomitant]
     Active Substance: GANGLIOSIDE GM1
     Indication: Ischaemic stroke
     Route: 042
     Dates: start: 20220219, end: 20220219
  21. NALMEFENE [Concomitant]
     Active Substance: NALMEFENE
     Indication: Ischaemic stroke
     Route: 042
     Dates: start: 20220219, end: 20220219

REACTIONS (3)
  - Cerebral haematoma [Recovered/Resolved with Sequelae]
  - Cerebral haemorrhage [Recovered/Resolved with Sequelae]
  - Brain oedema [Not Recovered/Not Resolved]

NARRATIVE: CASE EVENT DATE: 20220220
